FAERS Safety Report 17230996 (Version 1)
Quarter: 2020Q1

REPORT INFORMATION
  Report Type: Spontaneous
  Country: CA (occurrence: CA)
  Receive Date: 20200103
  Receipt Date: 20200103
  Transmission Date: 20200409
  Serious: Yes (Hospitalization, Other)
  Sender: FDA-Public Use
  Company Number: CA-ASTRAZENECA-2019SF89753

PATIENT
  Sex: Male

DRUGS (12)
  1. NYSTATIN. [Suspect]
     Active Substance: NYSTATIN
     Route: 065
  2. SYMBICORT [Suspect]
     Active Substance: BUDESONIDE\FORMOTEROL FUMARATE DIHYDRATE
     Route: 055
  3. AMOXICILLIN. [Suspect]
     Active Substance: AMOXICILLIN
     Route: 065
  4. TRIMETHOPRIM AND SULFAMETHOXAZOLE [Suspect]
     Active Substance: SULFAMETHOXAZOLE\TRIMETHOPRIM
     Route: 065
  5. PANTOPRAZOLE [Suspect]
     Active Substance: PANTOPRAZOLE
     Route: 065
  6. PREDNISONE. [Suspect]
     Active Substance: PREDNISONE
     Route: 065
  7. SPIRIVA [Suspect]
     Active Substance: TIOTROPIUM BROMIDE MONOHYDRATE
     Route: 065
  8. TUDORZA GENUAIR [Suspect]
     Active Substance: ACLIDINIUM BROMIDE
     Route: 055
  9. AMOXICILLIN AND CLAVULANATE POTASSIUM [Suspect]
     Active Substance: AMOXICILLIN\CLAVULANATE POTASSIUM
     Route: 065
  10. NUCALA [Suspect]
     Active Substance: MEPOLIZUMAB
     Route: 042
  11. BECLOMETHASONE DIPROPIONATE [Suspect]
     Active Substance: BECLOMETHASONE DIPROPIONATE
     Route: 065
  12. SALBUTAMOL SULFATE [Suspect]
     Active Substance: ALBUTEROL SULFATE
     Route: 065

REACTIONS (23)
  - Depression [Recovered/Resolved]
  - Irritability [Recovered/Resolved]
  - Sleep disorder [Recovered/Resolved]
  - Therapeutic response decreased [Recovered/Resolved]
  - Fatigue [Recovered/Resolved]
  - Oral candidiasis [Recovered/Resolved]
  - Quality of life decreased [Recovered/Resolved]
  - Personal relationship issue [Recovered/Resolved]
  - Sinusitis [Recovered/Resolved]
  - Asthma [Recovered/Resolved]
  - Pulmonary congestion [Recovered/Resolved]
  - Decreased activity [Recovered/Resolved]
  - Weight increased [Recovered/Resolved]
  - Cognitive disorder [Recovered/Resolved]
  - General physical health deterioration [Recovered/Resolved]
  - Immune system disorder [Recovered/Resolved]
  - Malaise [Recovered/Resolved]
  - Mood swings [Recovered/Resolved]
  - Productive cough [Recovered/Resolved]
  - Psychiatric symptom [Recovered/Resolved]
  - Asthenia [Recovered/Resolved]
  - Dyspnoea [Recovered/Resolved]
  - Oxygen saturation decreased [Recovered/Resolved]
